FAERS Safety Report 22117026 (Version 2)
Quarter: 2023Q2

REPORT INFORMATION
  Report Type: Spontaneous
  Country: US (occurrence: None)
  Receive Date: 20230320
  Receipt Date: 20230503
  Transmission Date: 20230722
  Serious: Yes (Hospitalization)
  Sender: FDA-Public Use
  Company Number: 2023A062009

PATIENT
  Age: 25314 Day
  Sex: Female
  Weight: 90.7 kg

DRUGS (1)
  1. FASENRA [Suspect]
     Active Substance: BENRALIZUMAB
     Indication: Asthma
     Dosage: EVERY 4 WEEKS FOR 3 DOSES
     Route: 058

REACTIONS (5)
  - Duodenitis [Unknown]
  - Sepsis [Unknown]
  - Urinary tract infection [Unknown]
  - Illness [Unknown]
  - Duodenitis [Unknown]

NARRATIVE: CASE EVENT DATE: 20221216
